FAERS Safety Report 9450042 (Version 3)
Quarter: 2013Q3

REPORT INFORMATION
  Report Type: Spontaneous
  Country: SG (occurrence: SG)
  Receive Date: 20130809
  Receipt Date: 20130821
  Transmission Date: 20140515
  Serious: Yes (Other)
  Sender: FDA-Public Use
  Company Number: SG-ASTELLAS-2013US008474

PATIENT
  Sex: Female

DRUGS (4)
  1. ADVAGRAF [Suspect]
     Indication: TRANSPLANT REJECTION
     Dosage: 10 MG, UNKNOWN/D
     Route: 065
  2. ADVAGRAF [Suspect]
     Dosage: 7.5 MG, UNKNOWN/D
     Route: 065
  3. PROGRAF [Suspect]
     Indication: PRODUCT USED FOR UNKNOWN INDICATION
     Dosage: UNK
     Route: 065
  4. THYMOGLOBULINE [Concomitant]
     Indication: PROPHYLAXIS AGAINST TRANSPLANT REJECTION
     Dosage: UNK
     Route: 065

REACTIONS (2)
  - Complications of transplant surgery [Unknown]
  - Drug level fluctuating [Unknown]
